FAERS Safety Report 7148187-4 (Version None)
Quarter: 2010Q4

REPORT INFORMATION
  Report Type: 
  Country: None (occurrence: None)
  Receive Date: 20101209
  Receipt Date: 20101119
  Transmission Date: 20110411
  Serious: Yes (Death, Other)
  Sender: FDA-Public Use
  Company Number: PHEH2009US03752

PATIENT
  Age: 33 Year
  Sex: Female

DRUGS (1)
  1. ZELNORM [Suspect]
     Dosage: UNK
     Dates: start: 20070324

REACTIONS (10)
  - CARDIO-RESPIRATORY ARREST [None]
  - CONSTIPATION [None]
  - DEPRESSION [None]
  - DYSPNOEA [None]
  - HYPERTENSION [None]
  - LEFT VENTRICULAR HYPERTROPHY [None]
  - LETHARGY [None]
  - OXYGEN SATURATION ABNORMAL [None]
  - UNRESPONSIVE TO STIMULI [None]
  - VENTRICULAR FIBRILLATION [None]
